FAERS Safety Report 5148860-3 (Version None)
Quarter: 2006Q4

REPORT INFORMATION
  Report Type: 
  Country: None (occurrence: None)
  Receive Date: 20061108
  Receipt Date: 20061009
  Transmission Date: 20070319
  Serious: Yes (Death, Hospitalization)
  Sender: FDA-Public Use
  Company Number: 03-NIP00286

PATIENT
  Age: 64 Year
  Sex: Female
  Weight: 99.7913 kg

DRUGS (14)
  1. NIPENT [Suspect]
     Indication: CHRONIC LYMPHOCYTIC LEUKAEMIA
     Dosage: 2 MG/M2 (2 MG/M2, Q 21 DAYS), IVPB
     Route: 042
     Dates: start: 20030422, end: 20030603
  2. RITUXAN [Suspect]
     Indication: CHRONIC LYMPHOCYTIC LEUKAEMIA
     Dosage: 375 MG/M2 (375 MG/M2, Q 21 DAYS), IVPB
     Route: 042
     Dates: start: 20030422, end: 20030603
  3. CYCLOPHOSPHAMIDE [Suspect]
     Indication: CHRONIC LYMPHOCYTIC LEUKAEMIA
     Dosage: 600 MG/M2 (600 MG/M2, Q 21 DAYS), IVPB
     Route: 042
     Dates: start: 20030422, end: 20030603
  4. ACETAMINOPHEN [Concomitant]
  5. BENADRYL [Concomitant]
  6. CELEBREX [Concomitant]
  7. ALDOMET [Concomitant]
  8. LASIX [Concomitant]
  9. NEUPOGEN [Concomitant]
  10. COMPAZINE [Concomitant]
  11. LOZOL [Concomitant]
  12. NEXIUM [Concomitant]
  13. VALTREX [Concomitant]
  14. GLUCOTROL [Concomitant]

REACTIONS (8)
  - CARDIO-RESPIRATORY ARREST [None]
  - DIARRHOEA [None]
  - HYPOTENSION [None]
  - HYPOXIA [None]
  - NAUSEA [None]
  - PULMONARY EMBOLISM [None]
  - SEPSIS [None]
  - VOMITING [None]
